FAERS Safety Report 4282604-2 (Version None)
Quarter: 2004Q1

REPORT INFORMATION
  Report Type: 
  Country: None (occurrence: None)
  Receive Date: 20040130
  Receipt Date: 20021211
  Transmission Date: 20041129
  Serious: No
  Sender: FDA-Public Use
  Company Number: US-BRISTOL-MYERS SQUIBB COMPANY-12134235

PATIENT
  Age: 42 Year
  Sex: Male
  Weight: 77 kg

DRUGS (2)
  1. SERZONE [Suspect]
     Indication: DEPRESSION
     Dosage: OTHER ^BAD^ LOT NUMBER IS 1L41418.GOOD LOT NUMBER REPORTED AS 2B54682, EXP 31-JAN-05.
     Route: 048
     Dates: start: 19990301
  2. SERZONE [Suspect]
     Indication: ANXIETY
     Dosage: OTHER ^BAD^ LOT NUMBER IS 1L41418.GOOD LOT NUMBER REPORTED AS 2B54682, EXP 31-JAN-05.
     Route: 048
     Dates: start: 19990301

REACTIONS (4)
  - ACNE [None]
  - ANXIETY [None]
  - DRUG INEFFECTIVE [None]
  - INSOMNIA [None]
